FAERS Safety Report 7595141-4 (Version None)
Quarter: 2011Q2

REPORT INFORMATION
  Report Type: 
  Country: None (occurrence: None)
  Receive Date: 20110620
  Receipt Date: 20110329
  Transmission Date: 20111010
  Serious: Yes (Hospitalization)
  Sender: FDA-Public Use
  Company Number: UTC-005997

PATIENT
  Age: 88 Year
  Sex: Female

DRUGS (4)
  1. REVATIO [Concomitant]
  2. TYVASO [Suspect]
     Dosage: 216 MCG (54 MCG, 4 IN 1 D), INHALATION
     Route: 055
  3. COUMADIN [Concomitant]
  4. DIURETICS (DIURETICS) [Concomitant]

REACTIONS (3)
  - FLUID RETENTION [None]
  - RHINORRHOEA [None]
  - CARDIAC FAILURE [None]
